FAERS Safety Report 10183621 (Version 1)
Quarter: 2014Q2

REPORT INFORMATION
  Report Type: Spontaneous
  Country: GB (occurrence: GB)
  Receive Date: 20140520
  Receipt Date: 20140520
  Transmission Date: 20141212
  Serious: Yes (Hospitalization)
  Sender: FDA-Public Use
  Company Number: GB-BANPHARM-20142691

PATIENT
  Age: 7 Day
  Sex: Male
  Weight: .75 kg

DRUGS (2)
  1. IBUPROFEN UNKNOWN PRODUCT [Suspect]
     Indication: PATENT DUCTUS ARTERIOSUS
     Dosage: 10 MG/ KG
     Route: 042
     Dates: start: 20140313, end: 20140313
  2. IBUPROFEN UNKNOWN PRODUCT [Suspect]
     Indication: PATENT DUCTUS ARTERIOSUS
     Dosage: 5 MG / KG
     Route: 042

REACTIONS (1)
  - Intestinal perforation [Not Recovered/Not Resolved]
